APPROVED DRUG PRODUCT: ACYCLOVIR
Active Ingredient: ACYCLOVIR
Strength: 800MG
Dosage Form/Route: TABLET;ORAL
Application: A074658 | Product #002
Applicant: LEK PHARMACEUTICAL AND CHEMICAL CO DD
Approved: Apr 22, 1997 | RLD: No | RS: No | Type: DISCN